FAERS Safety Report 5127920-7 (Version None)
Quarter: 2006Q4

REPORT INFORMATION
  Report Type: 
  Country: None (occurrence: None)
  Receive Date: 20061013
  Receipt Date: 20061013
  Transmission Date: 20070319
  Serious: Yes (Life-Threatening, Hospitalization)
  Sender: FDA-Public Use
  Company Number: None

PATIENT
  Age: 29 Year
  Sex: Male
  Weight: 63.9572 kg

DRUGS (6)
  1. HYDROMORPHONE HCL [Suspect]
     Indication: PAIN
     Dosage: 2 MG ONCE IV BOLUS  1 DOSE
     Route: 040
     Dates: start: 20060112
  2. PROMETHAZINE [Suspect]
     Indication: NAUSEA
     Dosage: 25 MG ONCE IV BOLUS  1 DOSE
     Route: 040
     Dates: start: 20060112
  3. PROMETHAZINE [Suspect]
     Indication: PAIN
     Dosage: 25 MG ONCE IV BOLUS  1 DOSE
     Route: 040
     Dates: start: 20060112
  4. ERYTHROMYCIN [Concomitant]
  5. ONDANSETRON [Concomitant]
  6. ESCITALOPRAM [Concomitant]

REACTIONS (2)
  - LOSS OF CONSCIOUSNESS [None]
  - RESPIRATORY ARREST [None]
